FAERS Safety Report 7723698-9 (Version None)
Quarter: 2011Q3

REPORT INFORMATION
  Report Type: 
  Country: None (occurrence: None)
  Receive Date: 20110901
  Receipt Date: 20110829
  Transmission Date: 20111222
  Serious: Yes (Death)
  Sender: FDA-Public Use
  Company Number: US-MYLANLABS-2009S1007436

PATIENT
  Age: 39 Year
  Sex: Male
  Weight: 66.23 kg

DRUGS (15)
  1. XANAX [Concomitant]
  2. GABAPENTIN [Concomitant]
  3. PANTOPRAZOLE [Concomitant]
  4. LANTUS [Concomitant]
  5. METOCLOPRAMIDE [Concomitant]
     Indication: IMPAIRED GASTRIC EMPTYING
  6. PROMETHAZINE [Concomitant]
     Dosage: 1 - 2 TABLETS AS NEEDED
  7. HUMALOG [Concomitant]
     Dosage: SLIDING SCALE
  8. POTASSIUM [Concomitant]
  9. AMITRIPTYLINE HCL [Concomitant]
  10. FENTANYL-100 [Suspect]
     Indication: PAIN
     Dosage: CHANGED Q2D
     Route: 062
     Dates: end: 20070512
  11. FLORINEF [Concomitant]
     Dosage: 2 - 3 TIMES DAILY
  12. NORCO [Concomitant]
     Dosage: 10MG/325MG 4 - 6 DAILY AS NEEDED
  13. EFFEXOR XR [Concomitant]
  14. LUNESTA [Concomitant]
     Dosage: 1 OR 2 TABLETS AS NEEDED BEFORE BED
  15. KLONOPIN [Concomitant]

REACTIONS (1)
  - TOXICITY TO VARIOUS AGENTS [None]
